FAERS Safety Report 16135488 (Version 4)
Quarter: 2019Q4

REPORT INFORMATION
  Report Type: Report from Study
  Country: CA (occurrence: CA)
  Receive Date: 20190329
  Receipt Date: 20191008
  Transmission Date: 20200122
  Serious: Yes (Hospitalization, Other)
  Sender: FDA-Public Use
  Company Number: CA-TAKEDA-2019TUS018358

PATIENT
  Age: 62 Year
  Sex: Female

DRUGS (7)
  1. VEDOLIZUMAB [Suspect]
     Active Substance: VEDOLIZUMAB
     Dosage: 300 MILLIGRAM, Q4WEEKS
     Route: 042
     Dates: start: 20171004
  2. ENTOCORT [Concomitant]
     Active Substance: BUDESONIDE
     Dosage: UNK
  3. VITAMIN B12 [Concomitant]
     Active Substance: CYANOCOBALAMIN
     Dosage: UNK UNK, MONTHLY
     Route: 050
  4. RABEPRAZOLE TEVA [Concomitant]
     Dosage: 20 MILLIGRAM, QD
  5. VEDOLIZUMAB [Suspect]
     Active Substance: VEDOLIZUMAB
     Dosage: 300 MILLIGRAM, Q4WEEKS
     Route: 042
     Dates: end: 20190816
  6. VEDOLIZUMAB [Suspect]
     Active Substance: VEDOLIZUMAB
     Indication: CROHN^S DISEASE
     Dosage: 300 MILLIGRAM
     Route: 042
     Dates: start: 20170323
  7. VITAMIN D NOS [Concomitant]
     Active Substance: VITAMIN D NOS
     Dosage: UNK UNK, QD

REACTIONS (13)
  - Ileocolic bypass [Unknown]
  - Proctalgia [Unknown]
  - Pain [Unknown]
  - Diarrhoea [Unknown]
  - Off label use [Unknown]
  - White blood cell count increased [Unknown]
  - Epigastric discomfort [Unknown]
  - Lung neoplasm malignant [Recovered/Resolved]
  - Bile acid malabsorption [Unknown]
  - Acrochordon [Unknown]
  - Weight decreased [Unknown]
  - Female genital tract fistula [Not Recovered/Not Resolved]
  - Flatulence [Unknown]

NARRATIVE: CASE EVENT DATE: 20171004
